FAERS Safety Report 4854383-9 (Version None)
Quarter: 2005Q4

REPORT INFORMATION
  Report Type: 
  Country: None (occurrence: None)
  Receive Date: 20051215
  Receipt Date: 20050811
  Transmission Date: 20060501
  Serious: No
  Sender: FDA-Public Use
  Company Number: US-BRISTOL-MYERS SQUIBB COMPANY-13075312

PATIENT

DRUGS (1)
  1. KENALOG [Suspect]

REACTIONS (2)
  - CONTUSION [None]
  - CUSHING'S SYNDROME [None]
